FAERS Safety Report 9125085 (Version 1)
Quarter: 2013Q1

REPORT INFORMATION
  Report Type: Spontaneous
  Country: US (occurrence: US)
  Receive Date: 20130117
  Receipt Date: 20130117
  Transmission Date: 20140127
  Serious: No
  Sender: FDA-Public Use
  Company Number: US-PFIZER INC-2013019894

PATIENT
  Age: 47 Year
  Sex: Female
  Weight: 138 kg

DRUGS (2)
  1. LYRICA [Suspect]
     Indication: FIBROMYALGIA
     Dosage: 200 MG, 2X/DAY
     Dates: end: 20121224
  2. LYRICA [Suspect]
     Dosage: 200 MG, 2X/DAY
     Dates: start: 201212

REACTIONS (1)
  - Pruritus [Not Recovered/Not Resolved]
